FAERS Safety Report 5611402-X (Version None)
Quarter: 2008Q1

REPORT INFORMATION
  Report Type: 
  Country: None (occurrence: None)
  Receive Date: 20080201
  Receipt Date: 20080125
  Transmission Date: 20080703
  Serious: Yes (Other)
  Sender: FDA-Public Use
  Company Number: JP-PFIZER INC-2008001950

PATIENT
  Age: 85 Year
  Sex: Female

DRUGS (9)
  1. CELECOX [Suspect]
     Indication: RHEUMATOID ARTHRITIS
     Dosage: TEXT:400 (MG)/DAY
     Route: 048
     Dates: start: 20070719, end: 20070822
  2. PROGRAF [Suspect]
     Route: 048
     Dates: start: 20070220, end: 20070822
  3. PROGRAF [Suspect]
     Dosage: TEXT:2 (MG)/DAY
     Route: 048
     Dates: start: 20070320, end: 20070416
  4. PROGRAF [Suspect]
     Dosage: TEXT:3 (MG)/DAY
     Route: 048
  5. RIMATIL [Suspect]
     Dosage: DAILY DOSE:400MG
     Route: 048
  6. RHEUMATREX [Suspect]
     Dosage: DAILY DOSE:6MG
     Route: 048
  7. PARIET [Suspect]
     Dosage: DAILY DOSE:10MG
     Route: 048
     Dates: start: 20070527, end: 20070602
  8. ULCERLMIN [Suspect]
     Dosage: TEXT:3 (G)/DAY
     Route: 048
     Dates: start: 20070527, end: 20070602
  9. CRAVIT [Suspect]
     Dosage: TEXT:300 (MG)/DAY
     Route: 048
     Dates: start: 20070619, end: 20070709

REACTIONS (1)
  - ACUTE RESPIRATORY FAILURE [None]
